FAERS Safety Report 17301384 (Version 1)
Quarter: 2020Q1

REPORT INFORMATION
  Report Type: Spontaneous
  Country: US (occurrence: US)
  Receive Date: 20200121
  Receipt Date: 20200121
  Transmission Date: 20200409
  Serious: No
  Sender: FDA-Public Use
  Company Number: None

PATIENT
  Age: 34 Year
  Sex: Male

DRUGS (1)
  1. CLEARASIL STUBBORN ACNE CONTROL 5IN1 EXFOLIATING WASH [Suspect]
     Active Substance: SALICYLIC ACID

REACTIONS (2)
  - Product use complaint [None]
  - Product complaint [None]

NARRATIVE: CASE EVENT DATE: 20200115
